FAERS Safety Report 14403758 (Version 6)
Quarter: 2018Q3

REPORT INFORMATION
  Report Type: Report from Study
  Country: US (occurrence: US)
  Receive Date: 20180117
  Receipt Date: 20180810
  Transmission Date: 20181010
  Serious: No
  Sender: FDA-Public Use
  Company Number: PHEH2018US001316

PATIENT
  Sex: Male

DRUGS (1)
  1. ENTRESTO [Suspect]
     Active Substance: SACUBITRIL\VALSARTAN
     Indication: PRODUCT USED FOR UNKNOWN INDICATION
     Dosage: UNK
     Route: 048

REACTIONS (11)
  - Pollakiuria [Unknown]
  - Influenza [Unknown]
  - Therapeutic response unexpected [Unknown]
  - Peripheral swelling [Unknown]
  - Headache [Recovered/Resolved]
  - Arthralgia [Unknown]
  - Dizziness [Unknown]
  - Pain in extremity [Unknown]
  - Joint swelling [Unknown]
  - Gait inability [Unknown]
  - Malaise [Unknown]
